FAERS Safety Report 9125144 (Version 1)
Quarter: 2013Q1

REPORT INFORMATION
  Report Type: Spontaneous
  Country: US (occurrence: US)
  Receive Date: 20130117
  Receipt Date: 20130117
  Transmission Date: 20140127
  Serious: No
  Sender: FDA-Public Use
  Company Number: US-ASTRAZENECA-2013SE02317

PATIENT
  Age: 76 Year
  Sex: Female
  Weight: 81.6 kg

DRUGS (3)
  1. CRESTOR [Suspect]
     Indication: BLOOD CHOLESTEROL
     Route: 048
  2. SOTALOL [Concomitant]
  3. IRON MEDICATION [Concomitant]

REACTIONS (12)
  - Blood pressure increased [Unknown]
  - Chromaturia [Unknown]
  - Diarrhoea [Unknown]
  - Eye swelling [Unknown]
  - Micturition frequency decreased [Unknown]
  - Abdominal pain [Unknown]
  - Arthralgia [Unknown]
  - Dizziness [Unknown]
  - Headache [Unknown]
  - Myalgia [Unknown]
  - Nausea [Unknown]
  - Off label use [Unknown]
